FAERS Safety Report 14524466 (Version 1)
Quarter: 2018Q1

REPORT INFORMATION
  Report Type: Spontaneous
  Country: US (occurrence: US)
  Receive Date: 20180213
  Receipt Date: 20180213
  Transmission Date: 20180509
  Serious: No
  Sender: FDA-Public Use
  Company Number: US-TEVA-801309ACC

PATIENT
  Age: 86 Year
  Sex: Male

DRUGS (12)
  1. SIMVASTATIN. [Concomitant]
     Active Substance: SIMVASTATIN
  2. WARFARIN [Concomitant]
     Active Substance: WARFARIN
  3. NALOXONE W/PENTAZOCINE [Suspect]
     Active Substance: NALOXONE\PENTAZOCINE
     Indication: PAIN
     Dosage: 1-2 TABLETS
     Route: 048
     Dates: start: 20170706, end: 20170707
  4. LISINOPRIL. [Concomitant]
     Active Substance: LISINOPRIL
  5. FOSAMAX [Concomitant]
     Active Substance: ALENDRONATE SODIUM
  6. NALOXONE W/PENTAZOCINE [Suspect]
     Active Substance: NALOXONE\PENTAZOCINE
     Indication: HEADACHE
  7. ISOSORBIDE. [Concomitant]
     Active Substance: ISOSORBIDE
  8. SPIRONOLACTONE. [Concomitant]
     Active Substance: SPIRONOLACTONE
  9. CARVEDILOL. [Concomitant]
     Active Substance: CARVEDILOL
  10. SOTALOL. [Concomitant]
     Active Substance: SOTALOL
  11. RANITIDINE. [Concomitant]
     Active Substance: RANITIDINE
  12. PLAVIX [Concomitant]
     Active Substance: CLOPIDOGREL BISULFATE

REACTIONS (3)
  - Abdominal discomfort [Recovered/Resolved]
  - Malaise [Recovered/Resolved]
  - Nausea [Recovered/Resolved]

NARRATIVE: CASE EVENT DATE: 20170706
